FAERS Safety Report 7509241-8 (Version None)
Quarter: 2011Q2

REPORT INFORMATION
  Report Type: 
  Country: None (occurrence: None)
  Receive Date: 20110527
  Receipt Date: 20110221
  Transmission Date: 20111010
  Serious: Yes (Death)
  Sender: FDA-Public Use
  Company Number: GB-ROCHE-761701

PATIENT
  Age: 89 Year
  Sex: Male

DRUGS (4)
  1. LUCENTIS [Suspect]
     Indication: AGE-RELATED MACULAR DEGENERATION
     Dosage: LAST DOSE OF RANIBIZUMAB WAS RECEIVED ON 24 MARCH 2009.
     Route: 065
     Dates: start: 20090224
  2. AVASTIN [Suspect]
     Indication: AGE-RELATED MACULAR DEGENERATION
     Route: 065
     Dates: start: 20080801, end: 20080901
  3. ASPIRIN [Concomitant]
     Route: 048
  4. ATENOLOL [Concomitant]
     Route: 048

REACTIONS (1)
  - DEATH [None]
